FAERS Safety Report 16239585 (Version 5)
Quarter: 2019Q2

REPORT INFORMATION
  Report Type: Report from Study
  Country: KR (occurrence: KR)
  Receive Date: 20190425
  Receipt Date: 20190522
  Transmission Date: 20190711
  Serious: Yes (Other)
  Sender: FDA-Public Use
  Company Number: KR-PFIZER INC-2019171748

PATIENT
  Age: 71 Year
  Sex: Male
  Weight: 48.3 kg

DRUGS (12)
  1. SOLONDO [Concomitant]
     Active Substance: PREDNISOLONE
     Dosage: 2.5 MG, 1X/DAY
     Route: 048
     Dates: start: 20190221
  2. AVELUMAB [Suspect]
     Active Substance: AVELUMAB
     Indication: NON-SMALL CELL LUNG CANCER
     Dosage: 800 MG, EVERY 2 WEEKS
     Route: 042
     Dates: start: 20190322, end: 20190417
  3. IRCODON [Concomitant]
     Active Substance: OXYCODONE HYDROCHLORIDE
     Indication: TUMOUR PAIN
     Dosage: 5 MG, 3X/DAY
     Route: 048
     Dates: start: 20190215
  4. NORMAL SALINE [Concomitant]
     Active Substance: SODIUM CHLORIDE
     Indication: BLOOD CREATININE INCREASED
     Dosage: 1000 ML, SINGLE
     Route: 042
     Dates: start: 20190319, end: 20190325
  5. FEROBA YOU [Concomitant]
     Indication: ANAEMIA
     Dosage: SLOW RELEASE, 512 MG, 1X/DAY
     Route: 048
     Dates: start: 20190208
  6. MEGACE F [Concomitant]
     Indication: DECREASED APPETITE
     Dosage: 5 ML, 1X/DAY
     Route: 048
     Dates: start: 20190408
  7. TARGIN [Concomitant]
     Active Substance: NALOXONE HYDROCHLORIDE\OXYCODONE HYDROCHLORIDE
     Indication: TUMOUR PAIN
     Dosage: CONTROLLED RELEASE, [NALOXONE HYDROCHLORIDE 5MG]/[OXYCODONE HYDROCHLORIDE 10 MG], 1 TABLET
     Route: 048
     Dates: start: 20190208
  8. KALIMATE [Concomitant]
     Active Substance: CALCIUM POLYSTYRENE SULFONATE
     Indication: HYPERKALAEMIA
     Dosage: 5 G, 2X/DAY
     Route: 048
     Dates: start: 20190313
  9. AXITINIB [Suspect]
     Active Substance: AXITINIB
     Indication: NON-SMALL CELL LUNG CANCER
     Dosage: 5 MG, 2X/DAY
     Route: 048
     Dates: start: 20190322, end: 20190417
  10. SOLONDO [Concomitant]
     Active Substance: PREDNISOLONE
     Indication: ADRENAL INSUFFICIENCY
     Dosage: 5 MG, 1X/DAY
     Route: 048
     Dates: start: 20190221
  11. DURICEF [Concomitant]
     Active Substance: CEFADROXIL
     Indication: PROPHYLAXIS
     Dosage: 500 MG, 2X/DAY
     Route: 048
     Dates: start: 20190408, end: 20190416
  12. TANTUM [BENZYDAMINE HYDROCHLORIDE] [Concomitant]
     Indication: PROPHYLAXIS
     Dosage: GARGLE, 100 ML, 1X/DAY
     Dates: start: 20190322

REACTIONS (1)
  - Cardiac dysfunction [Not Recovered/Not Resolved]

NARRATIVE: CASE EVENT DATE: 20190417
